FAERS Safety Report 5515198-1 (Version None)
Quarter: 2007Q4

REPORT INFORMATION
  Report Type: 
  Country: None (occurrence: None)
  Receive Date: 20071113
  Receipt Date: 20070205
  Transmission Date: 20080405
  Serious: No
  Sender: FDA-Public Use
  Company Number: A0638426A

PATIENT
  Age: 68 Year
  Sex: Female
  Weight: 60 kg

DRUGS (4)
  1. COREG [Suspect]
     Dosage: 12.5MG TWICE PER DAY
     Route: 048
     Dates: start: 20001101
  2. FUROSEMIDE [Concomitant]
  3. FOSINOPRIL SODIUM [Concomitant]
     Dosage: 40MG PER DAY
  4. LOVASTATIN [Concomitant]
     Dosage: 20MG PER DAY

REACTIONS (2)
  - DIZZINESS [None]
  - HYPOTENSION [None]
